FAERS Safety Report 9787265 (Version 2)
Quarter: 2014Q1

REPORT INFORMATION
  Report Type: Spontaneous
  Country: IT (occurrence: IT)
  Receive Date: 20131230
  Receipt Date: 20140120
  Transmission Date: 20141002
  Serious: Yes (Death, Congenital Anomaly)
  Sender: FDA-Public Use
  Company Number: IT-009507513-1312ITA011387

PATIENT
  Age: 1 Day
  Sex: Female
  Weight: 1.5 kg

DRUGS (2)
  1. THERAPY UNSPECIFIED [Suspect]
  2. BENTELAN [Suspect]
     Indication: HEART BLOCK CONGENITAL
     Dosage: UNK
     Route: 064
     Dates: start: 19940919, end: 19941128

REACTIONS (2)
  - Heart block congenital [Fatal]
  - Foetal exposure during pregnancy [Recovered/Resolved]
